FAERS Safety Report 9878177 (Version 3)
Quarter: 2014Q1

REPORT INFORMATION
  Report Type: Spontaneous
  Country: US (occurrence: US)
  Receive Date: 20140206
  Receipt Date: 20140207
  Transmission Date: 20141002
  Serious: Yes (Hospitalization, Other)
  Sender: FDA-Public Use
  Company Number: US-PFIZER INC-2014025698

PATIENT
  Age: 56 Year
  Sex: Female
  Weight: 89.8 kg

DRUGS (1)
  1. LYRICA [Suspect]
     Indication: NERVOUS SYSTEM DISORDER
     Dosage: 150 MG, 2X/DAY
     Dates: start: 2008

REACTIONS (3)
  - Off label use [Unknown]
  - Intentional drug misuse [Unknown]
  - Cardiac failure congestive [Unknown]
